FAERS Safety Report 25782784 (Version 2)
Quarter: 2025Q3

REPORT INFORMATION
  Report Type: Report from Study
  Country: US (occurrence: US)
  Receive Date: 20250909
  Receipt Date: 20250917
  Transmission Date: 20251020
  Serious: Yes (Other)
  Sender: ABBVIE
  Company Number: US-ABBVIE-6445968

PATIENT
  Age: 67 Year
  Sex: Female
  Weight: 51 kg

DRUGS (6)
  1. RESTASIS [Suspect]
     Active Substance: CYCLOSPORINE
     Indication: Dry eye
     Dosage: 1 DROP IN EACH EYE
     Route: 047
     Dates: start: 2007
  2. VALIUM [Concomitant]
     Active Substance: DIAZEPAM
     Indication: Sleep disorder
  3. VITAMIN D [Concomitant]
     Active Substance: VITAMIN D NOS
     Indication: Vitamin supplementation
  4. ATORVASTATIN [Concomitant]
     Active Substance: ATORVASTATIN
     Indication: Blood cholesterol
  5. OMEPRAZOLE [Concomitant]
     Active Substance: OMEPRAZOLE
     Indication: Oesophageal spasm
  6. VITAMIN C [Concomitant]
     Active Substance: ASCORBIC ACID
     Indication: Vitamin supplementation

REACTIONS (10)
  - Macular degeneration [Not Recovered/Not Resolved]
  - Retinal tear [Recovered/Resolved]
  - Osteoporosis [Recovering/Resolving]
  - Thrombosis [Not Recovered/Not Resolved]
  - Venous occlusion [Recovering/Resolving]
  - Visual impairment [Not Recovered/Not Resolved]
  - Papilloedema [Recovering/Resolving]
  - Pain [Unknown]
  - Swelling [Recovering/Resolving]
  - Autoimmune thyroiditis [Unknown]

NARRATIVE: CASE EVENT DATE: 20150101
